FAERS Safety Report 4319402-7 (Version None)
Quarter: 2004Q1

REPORT INFORMATION
  Report Type: 
  Country: None (occurrence: None)
  Receive Date: 20040318
  Receipt Date: 20040318
  Transmission Date: 20041129
  Serious: Yes (Hospitalization)
  Sender: FDA-Public Use
  Company Number: None

PATIENT
  Age: 77 Year
  Sex: Female
  Weight: 48.0813 kg

DRUGS (2)
  1. ARICEPT [Suspect]
     Indication: DEMENTIA
     Dosage: 5MG Q DAY ORAL
     Route: 048
     Dates: start: 20040101, end: 20040316
  2. NAMENDA [Suspect]
     Indication: DEMENTIA
     Dosage: 5MG Q DAY ORAL
     Route: 048
     Dates: start: 20040101, end: 20040316

REACTIONS (3)
  - CONVULSION [None]
  - FALL [None]
  - TREMOR [None]
